FAERS Safety Report 5729619-2 (Version None)
Quarter: 2008Q2

REPORT INFORMATION
  Report Type: 
  Country: None (occurrence: None)
  Receive Date: 20080501
  Receipt Date: 20080425
  Transmission Date: 20081010
  Serious: Yes (Hospitalization)
  Sender: FDA-Public Use
  Company Number: 2008SP007324

PATIENT
  Age: 33 Year
  Sex: Female
  Weight: 50 kg

DRUGS (7)
  1. TEMODAL [Suspect]
     Indication: GLIOBLASTOMA MULTIFORME
     Dosage: 120 MG;QD;PO, 200 MG;QD;PO
     Route: 048
     Dates: start: 20070907, end: 20080210
  2. TEMODAL [Suspect]
     Indication: GLIOBLASTOMA MULTIFORME
     Dosage: 120 MG;QD;PO, 200 MG;QD;PO
     Route: 048
     Dates: start: 20070309
  3. BERIPLAST (FACTOR XIII) [Concomitant]
  4. RINDERON [Concomitant]
  5. PRIMPERAN TAB [Concomitant]
  6. FIBRINOGEN [Concomitant]
  7. FAMOTIDINE [Concomitant]

REACTIONS (1)
  - HEPATITIS B [None]
